FAERS Safety Report 18985021 (Version 1)
Quarter: 2021Q1

REPORT INFORMATION
  Report Type: Spontaneous
  Country: US (occurrence: US)
  Receive Date: 20210309
  Receipt Date: 20210309
  Transmission Date: 20210420
  Serious: No
  Sender: FDA-Public Use
  Company Number: US-GLENMARK PHARMACEUTICALS-2020GMK049696

PATIENT
  Sex: Male

DRUGS (2)
  1. IMIQUIMOD CREAM USP, 5% [Suspect]
     Active Substance: IMIQUIMOD
     Indication: HYPERKERATOSIS
     Dosage: EVERY OTHER DAY
     Route: 061
  2. CIMETIDINE [Concomitant]
     Active Substance: CIMETIDINE
     Indication: HYPERKERATOSIS
     Dosage: 400 MILLIGRAM, QD
     Route: 065

REACTIONS (1)
  - Drug effective for unapproved indication [Unknown]
